FAERS Safety Report 23258198 (Version 1)
Quarter: 2023Q4

REPORT INFORMATION
  Report Type: Other
  Country: CA (occurrence: None)
  Receive Date: 20231204
  Receipt Date: 20231204
  Transmission Date: 20240110
  Serious: No
  Sender: FDA-Public Use
  Company Number: CA-ROCHE-3466390

PATIENT
  Sex: Female

DRUGS (3)
  1. OCREVUS [Suspect]
     Active Substance: OCRELIZUMAB
     Indication: Relapsing-remitting multiple sclerosis
     Dosage: MORE DOSAGE INFORMATION IS 300 MG AT DAY 0 AND 14, THEN 600 MG EVERY 6 MONTH
     Route: 042
     Dates: start: 20201030
  2. TYLENOL [Suspect]
     Active Substance: ACETAMINOPHEN
     Indication: Product used for unknown indication
     Route: 065
  3. PAXLOVID [Suspect]
     Active Substance: NIRMATRELVIR\RITONAVIR
     Indication: Product used for unknown indication
     Route: 065

REACTIONS (3)
  - COVID-19 [Recovered/Resolved]
  - Diarrhoea [Recovered/Resolved]
  - Blood pressure decreased [Recovered/Resolved]
